FAERS Safety Report 6557944-4 (Version None)
Quarter: 2010Q1

REPORT INFORMATION
  Report Type: 
  Country: None (occurrence: None)
  Receive Date: 20100129
  Receipt Date: 20100125
  Transmission Date: 20100710
  Serious: Yes (Other)
  Sender: FDA-Public Use
  Company Number: US-BAYER-201012375NA

PATIENT
  Sex: Female

DRUGS (2)
  1. YASMIN [Suspect]
     Indication: DRUG USE FOR UNKNOWN INDICATION
  2. OCELLA [Suspect]
     Indication: DRUG USE FOR UNKNOWN INDICATION

REACTIONS (3)
  - DEEP VEIN THROMBOSIS [None]
  - PAIN [None]
  - PULMONARY EMBOLISM [None]
